FAERS Safety Report 8989904 (Version 3)
Quarter: 2013Q1

REPORT INFORMATION
  Report Type: Spontaneous
  Country: JP (occurrence: JP)
  Receive Date: 20121228
  Receipt Date: 20130204
  Transmission Date: 20140127
  Serious: Yes (Hospitalization)
  Sender: FDA-Public Use
  Company Number: JP-GLAXOSMITHKLINE-B0853476A

PATIENT
  Age: 65 Year
  Sex: Male
  Weight: 46 kg

DRUGS (5)
  1. VALTREX [Suspect]
     Indication: HERPES ZOSTER
     Dosage: 1000MG THREE TIMES PER DAY
     Route: 048
     Dates: start: 20121206, end: 20121209
  2. URSO [Concomitant]
     Indication: HEPATIC CIRRHOSIS
     Dosage: 200MG THREE TIMES PER DAY
     Route: 048
  3. RENIVEZE [Concomitant]
     Indication: HYPERTENSION
     Dosage: 2.5MG PER DAY
     Route: 048
  4. MEVALOTIN [Concomitant]
     Indication: DYSLIPIDAEMIA
     Dosage: 10MG PER DAY
     Route: 048
  5. CALSLOT [Concomitant]
     Indication: HYPERTENSION
     Dosage: 10MG PER DAY
     Route: 048

REACTIONS (12)
  - Renal failure [Recovering/Resolving]
  - Renal disorder [Recovering/Resolving]
  - Nausea [Recovering/Resolving]
  - Muscular weakness [Recovering/Resolving]
  - Dizziness [Recovering/Resolving]
  - Oliguria [Unknown]
  - Haematuria [Unknown]
  - Vomiting [Unknown]
  - Blood urea increased [Unknown]
  - Blood creatinine increased [Unknown]
  - Glomerular filtration rate decreased [Unknown]
  - C-reactive protein increased [Unknown]
